FAERS Safety Report 7560554-3 (Version None)
Quarter: 2011Q2

REPORT INFORMATION
  Report Type: 
  Country: None (occurrence: None)
  Receive Date: 20110621
  Receipt Date: 20100819
  Transmission Date: 20111010
  Serious: No
  Sender: FDA-Public Use
  Company Number: US-ASTRAZENECA-2010SE31625

PATIENT
  Age: 89 Year
  Sex: Male

DRUGS (3)
  1. VICODIN [Concomitant]
  2. LOMOTIL [Concomitant]
  3. ENTOCORT EC [Suspect]
     Route: 048
     Dates: start: 20100701

REACTIONS (2)
  - ABDOMINAL PAIN [None]
  - CONSTIPATION [None]
